FAERS Safety Report 10182076 (Version 1)
Quarter: 2014Q2

REPORT INFORMATION
  Report Type: Spontaneous
  Country: PT (occurrence: PT)
  Receive Date: 20140520
  Receipt Date: 20140520
  Transmission Date: 20141212
  Serious: Yes (Other)
  Sender: FDA-Public Use
  Company Number: PT-ROCHE-1403152

PATIENT
  Age: 37 Year
  Sex: Male

DRUGS (1)
  1. MABTHERA [Suspect]
     Indication: EPSTEIN-BARR VIRUS INFECTION
     Route: 042
     Dates: start: 20140508, end: 20140511

REACTIONS (3)
  - Necrotising retinitis [Not Recovered/Not Resolved]
  - Retinitis [Not Recovered/Not Resolved]
  - Off label use [Unknown]
